FAERS Safety Report 5510959-7 (Version None)
Quarter: 2007Q4

REPORT INFORMATION
  Report Type: 
  Country: None (occurrence: None)
  Receive Date: 20071109
  Receipt Date: 20071029
  Transmission Date: 20080405
  Serious: Yes (Death)
  Sender: FDA-Public Use
  Company Number: FI-JNJFOC-20071007768

PATIENT
  Age: 22 Year
  Sex: Female

DRUGS (3)
  1. REMICADE [Suspect]
     Indication: CROHN'S DISEASE
     Route: 042
  2. AZATHIOPRINE [Concomitant]
     Indication: CROHN'S DISEASE
  3. 5-ASA [Concomitant]
     Indication: CROHN'S DISEASE

REACTIONS (2)
  - DEATH [None]
  - SQUAMOUS CELL CARCINOMA [None]
